FAERS Safety Report 8809351 (Version 1)
Quarter: 2012Q4

REPORT INFORMATION
  Report Type: 
  Country: GR (occurrence: GR)
  Receive Date: 20120926
  Receipt Date: 20120926
  Transmission Date: 20130627
  Serious: Yes (Other)
  Sender: FDA-Public Use
  Company Number: GR-CELGENEUS-066-21880-12091881

PATIENT
  Sex: Female

DRUGS (2)
  1. REVLIMID [Suspect]
     Indication: MDS
     Route: 048
     Dates: start: 2011
  2. REVLIMID [Suspect]
     Route: 048
     Dates: start: 2012

REACTIONS (1)
  - Ovarian cancer [Unknown]
